FAERS Safety Report 4289856-3 (Version None)
Quarter: 2004Q1

REPORT INFORMATION
  Report Type: 
  Country: None (occurrence: None)
  Receive Date: 20040209
  Receipt Date: 20040120
  Transmission Date: 20041129
  Serious: Yes (Hospitalization)
  Sender: FDA-Public Use
  Company Number: B0320449A

PATIENT
  Age: 41 Year
  Sex: Male

DRUGS (4)
  1. EPIVIR [Suspect]
     Dates: start: 20010101
  2. STAVUDINE (FORMULATION UNKNOWN) (STAVUDINE) [Suspect]
     Dates: start: 20010101
  3. NELFINAVIR MESYLATE (FORMULATION UNKNOWN) (NELFINAVIR MESYLATE) [Suspect]
     Dates: start: 20010101
  4. CO-TRIMOXAZOLE [Concomitant]

REACTIONS (8)
  - BACTERIA TISSUE SPECIMEN IDENTIFIED [None]
  - DISEASE RECURRENCE [None]
  - LOCAL SWELLING [None]
  - LYMPHADENITIS [None]
  - LYMPHADENOPATHY [None]
  - MYCOBACTERIUM AVIUM COMPLEX IMMUNE RESTORATION DISEASE [None]
  - NECK PAIN [None]
  - NECROTISING GRANULOMATOUS LYMPHADENITIS [None]
